FAERS Safety Report 8796050 (Version 3)
Quarter: 2013Q1

REPORT INFORMATION
  Report Type: Spontaneous
  Country: US (occurrence: US)
  Receive Date: 20120919
  Receipt Date: 20130108
  Transmission Date: 20140127
  Serious: No
  Sender: FDA-Public Use
  Company Number: US-PFIZER INC-2012230120

PATIENT
  Age: 86 Year
  Sex: Female

DRUGS (15)
  1. ADVIL PM [Suspect]
     Indication: INSOMNIA
     Dosage: 400/76MG BY TAKING TWO ORAL CAPLETS OF 200/38MG ONCE A DAY
     Route: 048
     Dates: end: 20120915
  2. ADVIL PM [Suspect]
     Indication: ARTHRALGIA
     Dosage: 1 PO, 1 NIGHT
     Route: 048
     Dates: start: 201210, end: 201210
  3. ADVIL PM [Suspect]
     Indication: INSOMNIA
  4. TRIBENZOR [Concomitant]
     Indication: HYPERTENSION
     Dosage: UNK
  5. TRIBENZOR [Concomitant]
     Indication: BLOOD CHOLESTEROL INCREASED
     Dosage: 40-5-25 MG (1 TABLET), ONCE A DAY
     Route: 048
  6. TRIBENZOR [Concomitant]
     Indication: ILL-DEFINED DISORDER
  7. ATENOLOL [Concomitant]
     Dosage: UNK
  8. ATENOLOL [Concomitant]
     Dosage: 50 MG (1 TABLET), 2X/DAY
     Route: 048
  9. ACETYLSALICYLIC ACID [Concomitant]
     Dosage: 81 MG (1 TABLET), 1X/DAY
     Route: 048
  10. TYLENOL [Concomitant]
     Indication: ARTHRALGIA
     Dosage: 650 MG (1 TABLET AS NEEDED, EVERY 6 HRS)
     Route: 048
  11. GLUCOSAMINE [Concomitant]
     Dosage: UNK, AS DIRECTED
     Route: 048
  12. FISH OIL [Concomitant]
     Dosage: UNK, AS DIRECTED
     Route: 048
  13. TEMAZEPAM [Concomitant]
     Dosage: 15 MG (1 CAPSULE AT BEDTIME AS NEEDED), 1X/DAY
     Route: 048
  14. TRAMADOL HYDROCHLORIDE [Concomitant]
     Indication: PAIN
     Dosage: 50 MG (1 TABLET EVERY 6 HRS), AS NEEDED
     Route: 048
  15. ATORVASTATIN CALCIUM [Concomitant]
     Dosage: 40 MG (1 TABLET), 1X/DAY
     Route: 048

REACTIONS (4)
  - Restless legs syndrome [Recovered/Resolved]
  - Muscle spasms [Recovered/Resolved]
  - Limb discomfort [Recovered/Resolved]
  - Discomfort [Recovered/Resolved]
